FAERS Safety Report 10543270 (Version 1)
Quarter: 2014Q4

REPORT INFORMATION
  Report Type: Spontaneous
  Country: US (occurrence: None)
  Receive Date: 20141024
  Receipt Date: 20141024
  Transmission Date: 20150529
  Serious: Yes (Life-Threatening)
  Sender: FDA-Public Use
  Company Number: None

PATIENT
  Age: 61 Year
  Sex: Female
  Weight: 53.98 kg

DRUGS (1)
  1. DMSO BLADDER INSTILATION [Suspect]
     Active Substance: DIMETHYL SULFOXIDE
     Indication: ARTHRITIS
     Dosage: 6 PUMPS?3XADAY
     Dates: start: 20140901

REACTIONS (7)
  - Dyspnoea [None]
  - Heart rate increased [None]
  - Malaise [None]
  - Diarrhoea [None]
  - Asthenia [None]
  - Decreased appetite [None]
  - Dyspepsia [None]

NARRATIVE: CASE EVENT DATE: 20141007
